FAERS Safety Report 8000128-3 (Version None)
Quarter: 2011Q4

REPORT INFORMATION
  Report Type: 
  Country: None (occurrence: None)
  Receive Date: 20111220
  Receipt Date: 20111220
  Transmission Date: 20120403
  Serious: Yes (Hospitalization)
  Sender: FDA-Public Use
  Company Number: None

PATIENT
  Sex: Male
  Weight: 78.4723 kg

DRUGS (2)
  1. SPRYCEL [Suspect]
     Indication: LEUKAEMIA
     Dosage: 100 MG ONCE A DAY BY MOUTH
     Route: 048
     Dates: start: 20100101, end: 20110801
  2. SPRYCEL [Suspect]

REACTIONS (2)
  - DYSPNOEA [None]
  - PLEURAL EFFUSION [None]
